FAERS Safety Report 19328828 (Version 1)
Quarter: 2021Q2

REPORT INFORMATION
  Report Type: Spontaneous
  Country: TR (occurrence: TR)
  Receive Date: 20210528
  Receipt Date: 20210528
  Transmission Date: 20210717
  Serious: Yes (Other)
  Sender: FDA-Public Use
  Company Number: NVSC2019TR095567

PATIENT
  Age: 51 Year
  Sex: Male

DRUGS (1)
  1. TRILEPTAL [Suspect]
     Active Substance: OXCARBAZEPINE
     Indication: EPILEPSY
     Dosage: UNK, BID (TWICE A DAY, MORNING AND EVENING)
     Route: 065

REACTIONS (3)
  - Seizure [Unknown]
  - Product supply issue [Unknown]
  - Diabetes mellitus [Unknown]
